APPROVED DRUG PRODUCT: MESNEX
Active Ingredient: MESNA
Strength: 100MG/ML
Dosage Form/Route: INJECTABLE;INTRAVENOUS
Application: N019884 | Product #001 | TE Code: AP
Applicant: BAXTER HEALTHCARE CORP
Approved: Dec 30, 1988 | RLD: Yes | RS: Yes | Type: RX